FAERS Safety Report 16850516 (Version 1)
Quarter: 2019Q3

REPORT INFORMATION
  Report Type: Spontaneous
  Country: US (occurrence: US)
  Receive Date: 20190925
  Receipt Date: 20190925
  Transmission Date: 20191005
  Serious: No
  Sender: FDA-Public Use
  Company Number: US-UPSHER-SMITH LABORATORIES, LLC-2018USL00454

PATIENT
  Age: 74 Year
  Sex: Female

DRUGS (2)
  1. BACLOFEN. [Suspect]
     Active Substance: BACLOFEN
     Indication: MUSCLE SPASMS
     Dosage: 10 MG, 1X/DAY IN THE MORNING
     Route: 048
     Dates: start: 201808
  2. BACLOFEN. [Suspect]
     Active Substance: BACLOFEN
     Dosage: 20-30 MG, 1X/DAY IN THE EVENING
     Route: 048
     Dates: start: 201808

REACTIONS (1)
  - Therapeutic product effect delayed [Not Recovered/Not Resolved]

NARRATIVE: CASE EVENT DATE: 201808
